FAERS Safety Report 4532681-6 (Version None)
Quarter: 2004Q4

REPORT INFORMATION
  Report Type: 
  Country: None (occurrence: None)
  Receive Date: 20041221
  Receipt Date: 20041213
  Transmission Date: 20050328
  Serious: Yes (Other)
  Sender: FDA-Public Use
  Company Number: PHEH2004US13274

PATIENT
  Age: 51 Year
  Sex: Male

DRUGS (1)
  1. PARLODEL [Suspect]
     Indication: HYPERPROLACTINAEMIA
     Dosage: 2.5 MG, BID
     Route: 048
     Dates: start: 19960101

REACTIONS (6)
  - ANXIETY [None]
  - BLOOD PRESSURE INCREASED [None]
  - CARDIAC FLUTTER [None]
  - DIZZINESS [None]
  - HEADACHE [None]
  - PARAESTHESIA [None]
